FAERS Safety Report 5930217-6 (Version None)
Quarter: 2008Q4

REPORT INFORMATION
  Report Type: 
  Country: None (occurrence: None)
  Receive Date: 20081024
  Receipt Date: 20081010
  Transmission Date: 20090506
  Serious: Yes (Other)
  Sender: FDA-Public Use
  Company Number: DE-GENENTECH-270164

PATIENT

DRUGS (5)
  1. MABTHERA [Suspect]
     Indication: LYMPHOMA
  2. CYCLOPHOSPHAMIDE [Suspect]
     Indication: LYMPHOMA
  3. DOXORUBICIN HCL [Suspect]
     Indication: LYMPHOMA
  4. VINCRISTINE [Suspect]
     Indication: LYMPHOMA
  5. PREDNISONE TAB [Suspect]
     Indication: LYMPHOMA

REACTIONS (1)
  - PNEUMOCYSTIS JIROVECI PNEUMONIA [None]
